FAERS Safety Report 13334063 (Version 4)
Quarter: 2017Q3

REPORT INFORMATION
  Report Type: Report from Study
  Country: None (occurrence: TR)
  Receive Date: 20170313
  Receipt Date: 20170913
  Transmission Date: 20171127
  Serious: Yes (Hospitalization)
  Sender: FDA-Public Use
  Company Number: TR-ABBVIE-17P-161-1901537-00

PATIENT
  Age: 65 Year
  Sex: Female
  Weight: 100 kg

DRUGS (9)
  1. DUODOPA [Suspect]
     Active Substance: CARBIDOPA\LEVODOPA
     Indication: PARKINSON^S DISEASE
     Dosage: MORNING DOSE: 5.50 ML??CONTINUOUS DOSE: 2.40 ML??EXTRA DOSE: 1.00 ML
     Route: 050
     Dates: start: 20170301, end: 20170406
  2. LEVOTIRON [Concomitant]
     Active Substance: LEVOTHYROXINE SODIUM
     Indication: HYPOTHYROIDISM
     Route: 048
  3. MADOPAR HBS [Concomitant]
     Active Substance: BENSERAZIDE HYDROCHLORIDE\LEVODOPA
     Indication: PARKINSON^S DISEASE
     Dosage: 1X2
     Route: 048
     Dates: start: 2010
  4. NORVASC [Concomitant]
     Active Substance: AMLODIPINE BESYLATE
     Indication: HYPERTENSION
     Route: 048
     Dates: start: 2007
  5. PROTINUM [Concomitant]
     Indication: GASTRIC DISORDER
     Route: 048
     Dates: start: 2010
  6. DYLOXIA [Concomitant]
     Indication: SEDATIVE THERAPY
     Route: 048
  7. PROTINUM [Concomitant]
     Indication: PROPHYLAXIS
  8. MADOPAR [Concomitant]
     Active Substance: BENSERAZIDE HYDROCHLORIDE\LEVODOPA
     Indication: PARKINSON^S DISEASE
     Route: 048
     Dates: start: 2010
  9. DIAFORMIN [Concomitant]
     Active Substance: METFORMIN HYDROCHLORIDE
     Indication: DIABETES MELLITUS
     Route: 048

REACTIONS (3)
  - Acquired diaphragmatic eventration [Unknown]
  - C-reactive protein increased [Recovered/Resolved]
  - Pulmonary mass [Unknown]

NARRATIVE: CASE EVENT DATE: 20170306
